FAERS Safety Report 6521718-0 (Version None)
Quarter: 2009Q4

REPORT INFORMATION
  Report Type: 
  Country: None (occurrence: None)
  Receive Date: 20091222
  Receipt Date: 20091214
  Transmission Date: 20100525
  Serious: Yes (Hospitalization)
  Sender: FDA-Public Use
  Company Number: 2009SP042086

PATIENT

DRUGS (2)
  1. INTEGRILIN [Suspect]
     Indication: CEREBROVASCULAR ACCIDENT
     Dosage: 180 MCG/KG; ONCE; IV
     Route: 042
  2. INTEGRILIN [Suspect]
     Indication: DISEASE PROGRESSION
     Dosage: 180 MCG/KG; ONCE; IV
     Route: 042

REACTIONS (1)
  - HAEMORRHAGIC INFARCTION [None]
